FAERS Safety Report 5019284-4 (Version None)
Quarter: 2006Q2

REPORT INFORMATION
  Report Type: 
  Country: None (occurrence: None)
  Receive Date: 20060531
  Receipt Date: 20060516
  Transmission Date: 20061013
  Serious: Yes (Hospitalization, Other)
  Sender: FDA-Public Use
  Company Number: FI-2006-001507

PATIENT
  Age: 52 Year
  Sex: Male

DRUGS (5)
  1. BETASERON [Suspect]
     Indication: MULTIPLE SCLEROSIS
     Dates: start: 20010101, end: 20030101
  2. GLATIRAMER [Concomitant]
  3. REBIF [Concomitant]
  4. INTERFERON BETA-1A [Concomitant]
  5. TIZANIDINE HCL [Concomitant]

REACTIONS (9)
  - ACUTE FEBRILE NEUTROPHILIC DERMATOSIS [None]
  - GASTRITIS [None]
  - GENERAL PHYSICAL HEALTH DETERIORATION [None]
  - INFLUENZA LIKE ILLNESS [None]
  - INJECTION SITE ERYTHEMA [None]
  - INJECTION SITE RASH [None]
  - PERIVASCULAR DERMATITIS [None]
  - POST PROCEDURAL HAEMATOMA [None]
  - THERAPY NON-RESPONDER [None]
